FAERS Safety Report 4890065-5 (Version None)
Quarter: 2006Q1

REPORT INFORMATION
  Report Type: 
  Country: None (occurrence: None)
  Receive Date: 20060124
  Receipt Date: 20050606
  Transmission Date: 20060701
  Serious: Yes (Hospitalization)
  Sender: FDA-Public Use
  Company Number: FR-BRISTOL-MYERS SQUIBB COMPANY-12998415

PATIENT
  Age: 62 Year
  Sex: Male

DRUGS (4)
  1. HYDREA [Suspect]
     Indication: CHRONIC MYELOID LEUKAEMIA
     Route: 048
     Dates: start: 20000120
  2. CORTANCYL [Concomitant]
  3. MESALAMINE [Concomitant]
  4. PREVISCAN [Concomitant]

REACTIONS (6)
  - DRY SKIN [None]
  - ERYSIPELAS [None]
  - ERYTHEMA [None]
  - EXTREMITY NECROSIS [None]
  - HYPERKERATOSIS [None]
  - TELANGIECTASIA [None]
